FAERS Safety Report 6867303-2 (Version None)
Quarter: 2010Q3

REPORT INFORMATION
  Report Type: 
  Country: None (occurrence: None)
  Receive Date: 20100721
  Receipt Date: 20100721
  Transmission Date: 20110219
  Serious: Yes (Other)
  Sender: FDA-Public Use
  Company Number: None

PATIENT
  Sex: Female
  Weight: 63.9572 kg

DRUGS (1)
  1. PREDNISONE [Suspect]
     Indication: MYALGIA
     Dosage: 15MG 1 X DAILY
     Dates: start: 20100201, end: 20100701

REACTIONS (2)
  - ALOPECIA [None]
  - VISION BLURRED [None]
